FAERS Safety Report 25642234 (Version 2)
Quarter: 2025Q3

REPORT INFORMATION
  Report Type: Spontaneous
  Country: US (occurrence: US)
  Receive Date: 20250805
  Receipt Date: 20250829
  Transmission Date: 20251021
  Serious: Yes (Life-Threatening, Hospitalization)
  Sender: TEVA
  Company Number: US-TEVA-VS-3357911

PATIENT
  Age: 45 Year
  Sex: Female

DRUGS (1)
  1. NORTRIPTYLINE [Suspect]
     Active Substance: NORTRIPTYLINE
     Indication: Depression
     Route: 065

REACTIONS (3)
  - Intentional overdose [Unknown]
  - Hypotension [Recovering/Resolving]
  - Electrocardiogram abnormal [Recovering/Resolving]
